FAERS Safety Report 7433962-9 (Version None)
Quarter: 2011Q2

REPORT INFORMATION
  Report Type: 
  Country: None (occurrence: None)
  Receive Date: 20110418
  Receipt Date: 20110408
  Transmission Date: 20111010
  Serious: Yes (Hospitalization)
  Sender: FDA-Public Use
  Company Number: DKLU1069217

PATIENT
  Age: 13 Year
  Sex: Female

DRUGS (8)
  1. CYTARABINE [Concomitant]
  2. DEXAMETHASONE [Concomitant]
  3. ITRACONAZOLE [Concomitant]
  4. VINCRISTINE [Concomitant]
  5. DAUNORUBICIN (DAUNORUBICIN) [Concomitant]
  6. ELSPAR [Suspect]
     Indication: ACUTE LYMPHOCYTIC LEUKAEMIA
  7. PREDNISONE [Concomitant]
  8. METHOTREXATE [Concomitant]

REACTIONS (1)
  - POSTERIOR REVERSIBLE ENCEPHALOPATHY SYNDROME [None]
